FAERS Safety Report 13762657 (Version 2)
Quarter: 2017Q3

REPORT INFORMATION
  Report Type: Spontaneous
  Country: NL (occurrence: NL)
  Receive Date: 20170718
  Receipt Date: 20170802
  Transmission Date: 20171127
  Serious: Yes (Hospitalization, Other)
  Sender: FDA-Public Use
  Company Number: NL-APOTEX-2017AP014983

PATIENT
  Age: 53 Year
  Sex: Female

DRUGS (1)
  1. DILTIAZEM. [Suspect]
     Active Substance: DILTIAZEM
     Indication: PRODUCT USED FOR UNKNOWN INDICATION
     Dosage: 4800 MG, UNK
     Route: 065

REACTIONS (11)
  - Urinary incontinence [Recovered/Resolved]
  - Atrioventricular block complete [Recovered/Resolved]
  - Heart rate decreased [Recovered/Resolved]
  - Vomiting [Recovered/Resolved]
  - Rhythm idioventricular [Recovered/Resolved]
  - Lactic acidosis [Recovered/Resolved]
  - Depressed level of consciousness [Recovered/Resolved]
  - Toxicity to various agents [Unknown]
  - Hyperglycaemia [Recovered/Resolved]
  - Overdose [Unknown]
  - Cardiogenic shock [Recovered/Resolved]
